FAERS Safety Report 23129250 (Version 1)
Quarter: 2023Q4

REPORT INFORMATION
  Report Type: Report from Study
  Country: US (occurrence: US)
  Receive Date: 20231031
  Receipt Date: 20231031
  Transmission Date: 20240110
  Serious: Yes (Other)
  Sender: FDA-Public Use
  Company Number: US-ABBVIE-5468356

PATIENT
  Age: 75 Year
  Sex: Female

DRUGS (2)
  1. IMBRUVICA [Suspect]
     Active Substance: IBRUTINIB
     Indication: Chronic lymphocytic leukaemia
     Dosage: 3 CAPSULES A DAY
     Route: 048
     Dates: start: 20201025
  2. IMBRUVICA [Suspect]
     Active Substance: IBRUTINIB
     Indication: Chronic lymphocytic leukaemia
     Dosage: 1 CAPSULES PER DAY
     Route: 048
     Dates: end: 20221025

REACTIONS (5)
  - Cardiac disorder [Recovered/Resolved]
  - Investigation abnormal [Not Recovered/Not Resolved]
  - Muscle spasms [Unknown]
  - Asthenia [Unknown]
  - Dental care [Unknown]

NARRATIVE: CASE EVENT DATE: 20201025
